FAERS Safety Report 5799242-2 (Version None)
Quarter: 2008Q3

REPORT INFORMATION
  Report Type: 
  Country: None (occurrence: None)
  Receive Date: 20080702
  Receipt Date: 20080618
  Transmission Date: 20090109
  Serious: Yes (Hospitalization)
  Sender: FDA-Public Use
  Company Number: DE-ELI_LILLY_AND_COMPANY-DE200806004570

PATIENT
  Sex: Female
  Weight: 70 kg

DRUGS (4)
  1. CYMBALTA [Suspect]
     Indication: POLYNEUROPATHY
     Dosage: 30 MG, DAILY (1/D)
     Route: 048
     Dates: start: 20080314, end: 20080318
  2. BISOPROLOL FUMARATE [Concomitant]
     Indication: HYPERTENSION
     Dosage: 5 MG, DAILY (1/D)
     Route: 048
  3. DIOVAN [Concomitant]
     Indication: HYPERTENSION
     Dosage: 160 MG, DAILY (1/D)
     Route: 048
  4. HYDROCHLOROTHIAZIDE [Concomitant]
     Indication: OEDEMA
     Dosage: 25 MG, DAILY (1/D)
     Route: 048
     Dates: end: 20080318

REACTIONS (5)
  - ASTHENIA [None]
  - DISORIENTATION [None]
  - HYPONATRAEMIA [None]
  - STUPOR [None]
  - TREMOR [None]
